FAERS Safety Report 6691220-4 (Version None)
Quarter: 2010Q2

REPORT INFORMATION
  Report Type: 
  Country: None (occurrence: None)
  Receive Date: 20100422
  Receipt Date: 20100412
  Transmission Date: 20101027
  Serious: No
  Sender: FDA-Public Use
  Company Number: US-BIOGENIDEC-2010BI011975

PATIENT
  Age: 58 Year
  Sex: Female

DRUGS (2)
  1. AVONEX [Suspect]
     Indication: MULTIPLE SCLEROSIS
     Route: 030
     Dates: start: 20100409
  2. IBUPROFEN [Concomitant]
     Indication: PREMEDICATION

REACTIONS (7)
  - BACK PAIN [None]
  - CHEST PAIN [None]
  - DIZZINESS [None]
  - INFLUENZA LIKE ILLNESS [None]
  - INSOMNIA [None]
  - NECK PAIN [None]
  - TREMOR [None]
